FAERS Safety Report 15899100 (Version 1)
Quarter: 2019Q1

REPORT INFORMATION
  Report Type: Spontaneous
  Country: US (occurrence: US)
  Receive Date: 20190201
  Receipt Date: 20190201
  Transmission Date: 20190417
  Serious: Yes (Other)
  Sender: FDA-Public Use
  Company Number: US-ASTRAZENECA-2019SE15432

PATIENT
  Age: 62 Year
  Sex: Female

DRUGS (2)
  1. TAMOXIFEN [Suspect]
     Active Substance: TAMOXIFEN
     Route: 048
  2. FASLODEX [Suspect]
     Active Substance: FULVESTRANT
     Route: 030
     Dates: end: 201110

REACTIONS (2)
  - Metastases to bone [Unknown]
  - Malignant neoplasm progression [Unknown]
